FAERS Safety Report 19183448 (Version 1)
Quarter: 2021Q2

REPORT INFORMATION
  Report Type: Spontaneous
  Country: US (occurrence: US)
  Receive Date: 20210427
  Receipt Date: 20210427
  Transmission Date: 20210717
  Serious: Yes (Hospitalization)
  Sender: FDA-Public Use
  Company Number: US-LUPIN PHARMACEUTICALS INC.-2021-05402

PATIENT
  Age: 5 Day
  Sex: Female

DRUGS (12)
  1. MIDAZOLAM. [Suspect]
     Active Substance: MIDAZOLAM
     Indication: SEIZURE
     Dosage: UNK, INFUSION
     Route: 065
  2. MIDAZOLAM. [Suspect]
     Active Substance: MIDAZOLAM
     Dosage: LATER, THE DOSE WAS MAXIMIZED, INFUSION
     Route: 065
  3. TOPIRAMATE. [Concomitant]
     Active Substance: TOPIRAMATE
     Indication: SEIZURE
     Dosage: MAINTENANCE DOSE
     Route: 065
  4. SODIUM PHENYLACETATE AND SODIUM BENZOATE [Concomitant]
     Active Substance: SODIUM BENZOATE\SODIUM PHENYLACETATE
     Indication: HYPERAMMONAEMIC CRISIS
     Dosage: STOPPED AND RESUMED ONCE. LATER, CONTINUED WHILE ANTI?EPILEPTIC DRUGS ARE WEANED OFF.
     Route: 042
  5. LEVETIRACETAM. [Suspect]
     Active Substance: LEVETIRACETAM
     Dosage: UNK, IT WAS CONTINUED AT MAINTENANCE DOSE
     Route: 065
  6. PHENOBARBITAL. [Suspect]
     Active Substance: PHENOBARBITAL
     Dosage: MAXIMUM DOSE THROUGH INFUSION
     Route: 065
  7. FOSPHENYTOIN [Suspect]
     Active Substance: FOSPHENYTOIN
     Dosage: LATER, THE DOSE WAS MAXIMISED, INFUSION
     Route: 065
  8. SODIUM PHENYLACETATE AND SODIUM BENZOATE [Concomitant]
     Active Substance: SODIUM BENZOATE\SODIUM PHENYLACETATE
     Dosage: STOPPED AND RESUMED ONCE. LATER, CONTINUED WHILE ANTI?EPILEPTIC DRUGS ARE WEANED OFF.
     Route: 042
  9. FOSPHENYTOIN [Suspect]
     Active Substance: FOSPHENYTOIN
     Indication: SEIZURE
     Dosage: UNK, INFUSION
     Route: 065
  10. PHENOBARBITAL. [Suspect]
     Active Substance: PHENOBARBITAL
     Indication: SEIZURE
     Dosage: LOADING DOSE
     Route: 065
  11. LEVETIRACETAM. [Suspect]
     Active Substance: LEVETIRACETAM
     Dosage: LATER, THE DOSE WAS MAXIMISED, INFUSION
     Route: 065
  12. LEVETIRACETAM. [Suspect]
     Active Substance: LEVETIRACETAM
     Indication: SEIZURE
     Dosage: UNK, INFUSION
     Route: 065

REACTIONS (1)
  - Drug ineffective [Unknown]
